FAERS Safety Report 5781164-4 (Version None)
Quarter: 2008Q2

REPORT INFORMATION
  Report Type: 
  Country: None (occurrence: None)
  Receive Date: 20080618
  Receipt Date: 20080605
  Transmission Date: 20081010
  Serious: Yes (Hospitalization, Other)
  Sender: FDA-Public Use
  Company Number: 2008BI014559

PATIENT
  Age: 61 Year
  Sex: Female

DRUGS (2)
  1. TYSABRI [Suspect]
     Indication: MULTIPLE SCLEROSIS
     Dosage: 300 MG; QM; IV
     Route: 042
     Dates: start: 20061128, end: 20080512
  2. AVONEX [Concomitant]

REACTIONS (11)
  - BRAIN INJURY [None]
  - CONVULSION [None]
  - COORDINATION ABNORMAL [None]
  - EPILEPSY [None]
  - HAEMOGLOBIN DECREASED [None]
  - HYPERSOMNIA [None]
  - HYPOVENTILATION [None]
  - INFECTION [None]
  - LOSS OF CONSCIOUSNESS [None]
  - SOMNOLENCE [None]
  - STOMACH DISCOMFORT [None]
